FAERS Safety Report 5023522-1 (Version None)
Quarter: 2006Q2

REPORT INFORMATION
  Report Type: 
  Country: None (occurrence: None)
  Receive Date: 20060612
  Receipt Date: 20060523
  Transmission Date: 20061013
  Serious: Yes (Other)
  Sender: FDA-Public Use
  Company Number: FR-GLAXOSMITHKLINE-B0425322A

PATIENT
  Age: 19 Month
  Sex: Male
  Weight: 13 kg

DRUGS (1)
  1. AUGMENTIN '125' [Suspect]
     Indication: LARYNGITIS
     Route: 048
     Dates: start: 20060515, end: 20060522

REACTIONS (2)
  - ERYTHEMA MULTIFORME [None]
  - PHARMACEUTICAL PRODUCT COMPLAINT [None]
